FAERS Safety Report 14277659 (Version 1)
Quarter: 2017Q4

REPORT INFORMATION
  Report Type: Spontaneous
  Country: US (occurrence: FR)
  Receive Date: 20171211
  Receipt Date: 20171211
  Transmission Date: 20180321
  Serious: Yes (Hospitalization, Other)
  Sender: FDA-Public Use
  Company Number: US-OTSUKA-2016_010351

PATIENT
  Age: 16 Year
  Sex: Male

DRUGS (1)
  1. ABILIFY [Suspect]
     Active Substance: ARIPIPRAZOLE
     Indication: AFFECTIVE DISORDER
     Dosage: 2.5 MG, QD
     Route: 048
     Dates: start: 201604

REACTIONS (3)
  - Hospitalisation [Unknown]
  - Off label use [Unknown]
  - Wrong technique in product usage process [Unknown]
